FAERS Safety Report 15951545 (Version 2)
Quarter: 2020Q1

REPORT INFORMATION
  Report Type: Spontaneous
  Country: US (occurrence: US)
  Receive Date: 20190212
  Receipt Date: 20200316
  Transmission Date: 20200409
  Serious: Yes (Hospitalization)
  Sender: FDA-Public Use
  Company Number: US-ALLERGAN-1905768US

PATIENT
  Sex: Female

DRUGS (1)
  1. LINZESS [Suspect]
     Active Substance: LINACLOTIDE
     Indication: CONSTIPATION
     Dosage: 72 ?G
     Route: 048
     Dates: start: 2018, end: 2018

REACTIONS (12)
  - Weight decreased [Recovered/Resolved]
  - Gastrointestinal hypermotility [Recovered/Resolved]
  - Diarrhoea [Recovered/Resolved]
  - Vein collapse [Recovered/Resolved]
  - Amnesia [Not Recovered/Not Resolved]
  - Dehydration [Recovered/Resolved]
  - Diverticulum [Recovered/Resolved]
  - Pyrexia [Recovered/Resolved]
  - Lip exfoliation [Recovered/Resolved]
  - Abdominal discomfort [Recovered/Resolved]
  - Anxiety [Not Recovered/Not Resolved]
  - Diverticulitis [Not Recovered/Not Resolved]

NARRATIVE: CASE EVENT DATE: 2018
